FAERS Safety Report 22043202 (Version 2)
Quarter: 2023Q2

REPORT INFORMATION
  Report Type: Spontaneous
  Country: US (occurrence: US)
  Receive Date: 20230228
  Receipt Date: 20230420
  Transmission Date: 20230722
  Serious: Yes (Life-Threatening, Other)
  Sender: FDA-Public Use
  Company Number: US-BRISTOL-MYERS SQUIBB COMPANY-2023-022529

PATIENT
  Age: 83 Year
  Sex: Male

DRUGS (33)
  1. REVLIMID [Suspect]
     Active Substance: LENALIDOMIDE
     Indication: Follicular lymphoma
     Dosage: 15 MG CAPSULES 21
     Route: 048
     Dates: start: 20230201
  2. REVLIMID [Suspect]
     Active Substance: LENALIDOMIDE
     Indication: Diffuse large B-cell lymphoma
     Dosage: ONE CAPSULE (10 MG) BY MOUTH ONCE A DAY FOR 28 DAYS. TAKE WHOLE WITH WATER. DO NOT BREAK CHEW OR OPE
     Route: 048
  3. REVLIMID [Suspect]
     Active Substance: LENALIDOMIDE
     Dosage: ONE CAPSULE (10 MG) BY MOUTH ONCE A DAY FOR 21 DAYS.
     Route: 048
  4. TAFASITAMAB [Suspect]
     Active Substance: TAFASITAMAB
     Indication: Product used for unknown indication
  5. ACYCLOVIR [Concomitant]
     Active Substance: ACYCLOVIR
     Indication: Product used for unknown indication
     Dosage: ONE TABLET BY MOUTH TWO TIMES A DAY
     Route: 048
  6. ALBUTEROL [Concomitant]
     Active Substance: ALBUTEROL
     Indication: Product used for unknown indication
     Dosage: INHALE 2 PUFFS (180 MCG) BY MOUTH EVERY FOUR HOURS AS NEEDED FOR WHEEZING AND SHORTNESS OF BREATH. U
     Route: 055
  7. APIXABAN [Concomitant]
     Active Substance: APIXABAN
     Indication: Product used for unknown indication
     Dosage: ONE TABLET (5 MG TOTAL) BY MOUTH EVERY 12 HOURS
     Route: 048
  8. BISACODYL [Concomitant]
     Active Substance: BISACODYL
     Indication: Product used for unknown indication
     Dosage: 5 MG EC TABLET
  9. CARBOXYMETHYLCELLULOSE [Concomitant]
     Active Substance: CARBOXYMETHYLCELLULOSE
     Indication: Product used for unknown indication
     Route: 047
  10. CARBOXYMETHYLCELLULOSE SODIUM [Concomitant]
     Active Substance: CARBOXYMETHYLCELLULOSE SODIUM
     Indication: Product used for unknown indication
  11. CODEINE GUAIFENESIN [Concomitant]
     Active Substance: CODEINE PHOSPHATE\GUAIFENESIN
     Indication: Product used for unknown indication
     Dosage: 10-200 MG/5 ML LIQUID
  12. DILTIAZEM [Concomitant]
     Active Substance: DILTIAZEM
     Indication: Product used for unknown indication
  13. DOCUSATE SODIUM [Concomitant]
     Active Substance: DOCUSATE SODIUM
     Indication: Product used for unknown indication
  14. EZETIMIBE [Concomitant]
     Active Substance: EZETIMIBE
     Indication: Product used for unknown indication
     Route: 048
  15. FENOFIBRATE [Concomitant]
     Active Substance: FENOFIBRATE
     Indication: Product used for unknown indication
  16. FINASTERIDE [Concomitant]
     Active Substance: FINASTERIDE
     Indication: Product used for unknown indication
  17. FLUTICASONE PROPIONATE [Concomitant]
     Active Substance: FLUTICASONE PROPIONATE
     Indication: Product used for unknown indication
     Dosage: ACTUATION NASAL SPRAY
  18. HYDROCHLOROTHIAZIDE [Concomitant]
     Active Substance: HYDROCHLOROTHIAZIDE
     Indication: Product used for unknown indication
     Dosage: ONE TABLET (25MG TOTAL) BY MOUTH ONCE A DAY
  19. LEVOCETIRIZINE [Concomitant]
     Active Substance: LEVOCETIRIZINE
     Indication: Product used for unknown indication
     Dosage: ONE TABLET (5 MG TOTAL) BY MOUTH EVERY EVENING
  20. LIDOCAINE\PRILOCAINE [Concomitant]
     Active Substance: LIDOCAINE\PRILOCAINE
     Indication: Pain
     Dosage: APPLY TOPICALLY TO THE AFFECTED AREA AS NEEDED FOR PAIN (APPLY TO CHEMOPORT)
     Route: 061
  21. LORAZEPAM [Concomitant]
     Active Substance: LORAZEPAM
     Indication: Anxiety
     Dosage: 0.5MG (0.25 MG) TABLET BY MOUTH TWO TIMES A DAY AS NEEDED FOR ANXIETY OR INSOMNIA (BEDTIME IF EXTREM
  22. LORAZEPAM [Concomitant]
     Active Substance: LORAZEPAM
     Indication: Insomnia
  23. MAGNESIUM OXIDE [Concomitant]
     Active Substance: MAGNESIUM OXIDE
     Indication: Product used for unknown indication
     Dosage: 400 MG (241.3 MG MAGNESIUM) TABLET?TAKE ONE TABLET(400 MG TOTALLY) BY MOUTH TWO TIMES A DAY
     Route: 048
  24. OMEPRAZOLE [Concomitant]
     Active Substance: OMEPRAZOLE
     Indication: Product used for unknown indication
     Dosage: ONE CAPSULE (40MG TOTAL) BY MOUTH ONCE A DAY
     Route: 048
  25. ONDANSETRON [Concomitant]
     Active Substance: ONDANSETRON
     Indication: Nausea
     Dosage: DISSOLVE ONE TABLET (4 MG TOTAL) IN MOUTH EVERY EIGHT HOURS AS NEEDED FOR NAUSEA VOMITING
     Route: 048
  26. ONDANSETRON [Concomitant]
     Active Substance: ONDANSETRON
     Indication: Vomiting
  27. POLYETHYLENE GLYCOL, UNSPECIFIED [Concomitant]
     Active Substance: POLYETHYLENE GLYCOL, UNSPECIFIED
     Indication: Product used for unknown indication
     Dosage: 17 GRAM PACKET
  28. POLYVINYL ALCOHOL [Concomitant]
     Active Substance: POLYVINYL ALCOHOL
     Indication: Dry eye
     Dosage: INSTALL ONE DROP INTO BOTH EYES EVERY THREE HOURS AS NEEDED FOR DRY EYES
     Route: 047
  29. PREDNISOLONE ACETATE [Concomitant]
     Active Substance: PREDNISOLONE ACETATE
     Indication: Product used for unknown indication
     Route: 047
  30. PROCHLORPERAZINE [Concomitant]
     Active Substance: PROCHLORPERAZINE
     Indication: Nausea
     Dosage: ONE TABLET (10 MG TOTAL) BY MOUTH FOR EVERY SIX HOURS AS NEEDED FOR NAUSEA AND VOMITING
     Route: 048
  31. PROCHLORPERAZINE [Concomitant]
     Active Substance: PROCHLORPERAZINE
     Indication: Vomiting
  32. TAMSULOSIN [Concomitant]
     Active Substance: TAMSULOSIN
     Indication: Product used for unknown indication
  33. VICKS DAYQUIL COLD and FLU RELIEF [Concomitant]
     Indication: Product used for unknown indication
     Dosage: 5-10-325 MG/15 ML LIQUID

REACTIONS (3)
  - Hypoacusis [Unknown]
  - Neutropenia [Recovered/Resolved]
  - Off label use [Unknown]

NARRATIVE: CASE EVENT DATE: 20230222
